FAERS Safety Report 11926283 (Version 2)
Quarter: 2020Q4

REPORT INFORMATION
  Report Type: Spontaneous
  Country: PL (occurrence: PL)
  Receive Date: 20160119
  Receipt Date: 20201019
  Transmission Date: 20210113
  Serious: Yes (Hospitalization, Other)
  Sender: FDA-Public Use
  Company Number: PL-SHIRE-PL201600477

PATIENT
  Age: 31 Year
  Sex: Male

DRUGS (2)
  1. 476 (MESALAZINE/MESALAMINE) [Suspect]
     Active Substance: MESALAMINE
     Indication: COLITIS ULCERATIVE
     Dosage: UNK, UNKNOWN
     Route: 048
  2. MESALAZINE [Suspect]
     Active Substance: MESALAMINE
     Indication: COLITIS ULCERATIVE
     Dosage: UNK, UNKNOWN
     Route: 054

REACTIONS (4)
  - Pulmonary toxicity [Recovered/Resolved]
  - Organising pneumonia [Recovered/Resolved]
  - Colitis ulcerative [Unknown]
  - Toxicity to various agents [Recovered/Resolved]
